FAERS Safety Report 16700380 (Version 1)
Quarter: 2019Q3

REPORT INFORMATION
  Report Type: Spontaneous
  Country: ES (occurrence: ES)
  Receive Date: 20190814
  Receipt Date: 20190814
  Transmission Date: 20191004
  Serious: Yes (Hospitalization)
  Sender: FDA-Public Use
  Company Number: ES-SUN PHARMACEUTICAL INDUSTRIES LTD-2019RR-217464

PATIENT
  Age: 78 Year
  Sex: Female

DRUGS (6)
  1. FUROSEMIDA (1615A) [Concomitant]
     Active Substance: FUROSEMIDE
     Indication: CARDIAC FAILURE CONGESTIVE
     Dosage: 40 MILLIGRAM, DAILY
     Route: 048
     Dates: start: 201610
  2. BISOPROLOL (2328A) [Concomitant]
     Active Substance: BISOPROLOL
     Indication: CARDIAC FAILURE CONGESTIVE
     Dosage: 5 MILLIGRAM, DAILY
     Route: 048
     Dates: start: 201610
  3. DENOSUMAB (8418A) [Suspect]
     Active Substance: DENOSUMAB
     Indication: OSTEOPOROSIS
     Dosage: 10 MILLIGRAM, DAILY
     Route: 058
     Dates: start: 20171110, end: 20180606
  4. DEMILOS 600 MG/1000 UI COMPRIMIDOS BUCODISPERSABLES , 30 COMPRIMIDOS [Concomitant]
     Indication: OSTEOPOROSIS
     Dosage: 600 MILLIGRAM, DAILY
     Route: 048
     Dates: start: 201705
  5. ENALAPRIL MALEATO (2142MA) [Concomitant]
     Active Substance: ENALAPRIL MALEATE
     Indication: CARDIAC FAILURE CONGESTIVE
     Dosage: 5 MILLIGRAM, DAILY
     Route: 048
     Dates: start: 201610
  6. PANTOPRAZOL [Suspect]
     Active Substance: PANTOPRAZOLE SODIUM
     Indication: PROPHYLAXIS
     Dosage: 20 MILLIGRAM, DAILY
     Route: 048
     Dates: start: 201706, end: 20190213

REACTIONS (2)
  - Hypomagnesaemia [Recovered/Resolved]
  - Hypocalcaemia [Recovered/Resolved]

NARRATIVE: CASE EVENT DATE: 20181203
